FAERS Safety Report 20088063 (Version 1)
Quarter: 2021Q4

REPORT INFORMATION
  Report Type: Spontaneous
  Country: CN (occurrence: CN)
  Receive Date: 20211118
  Receipt Date: 20211118
  Transmission Date: 20220303
  Serious: Yes (Life-Threatening, Hospitalization, Other)
  Sender: FDA-Public Use
  Company Number: CN-SA-SAC20211118000111

PATIENT
  Age: 61 Year
  Sex: Male
  Weight: 67 kg

DRUGS (9)
  1. LANTUS SOLOSTAR [Suspect]
     Active Substance: INSULIN GLARGINE
     Indication: Diabetes mellitus
     Dosage: 26 IU, QD
     Route: 065
     Dates: start: 2011
  2. LANTUS SOLOSTAR [Suspect]
     Active Substance: INSULIN GLARGINE
     Dosage: 30 IU, QD
     Route: 065
  3. CLOPIDOGREL BISULFATE [Suspect]
     Active Substance: CLOPIDOGREL BISULFATE
     Indication: Stent placement
     Dosage: 75 MG, QD
     Route: 065
     Dates: start: 2008
  4. ASPIRIN [Concomitant]
     Active Substance: ASPIRIN
     Dosage: UNK
     Route: 065
     Dates: start: 2008
  5. GLUCOBAY [Concomitant]
     Active Substance: ACARBOSE
     Dosage: BID
     Route: 065
  6. NOVORAPID [Concomitant]
     Active Substance: INSULIN ASPART
     Dosage: UNK, BID
     Route: 065
  7. METFORMIN [Concomitant]
     Active Substance: METFORMIN HYDROCHLORIDE
     Dosage: UNK
     Route: 065
  8. SITAGLIPTIN [Concomitant]
     Active Substance: SITAGLIPTIN
     Dosage: UNK
     Route: 065
  9. GLIMEPIRIDE [Concomitant]
     Active Substance: GLIMEPIRIDE
     Dosage: UNK
     Route: 065

REACTIONS (12)
  - Myocardial infarction [Unknown]
  - Cerebral infarction [Unknown]
  - Gastric haemorrhage [Unknown]
  - Haematochezia [Unknown]
  - Haematemesis [Unknown]
  - Hypoglycaemia [Unknown]
  - Asthenia [Unknown]
  - Hyperhidrosis [Unknown]
  - Lower limb fracture [Unknown]
  - Blood glucose fluctuation [Unknown]
  - Intentional product misuse [Unknown]
  - Stent placement [Unknown]

NARRATIVE: CASE EVENT DATE: 20080101
